FAERS Safety Report 18313671 (Version 2)
Quarter: 2021Q1

REPORT INFORMATION
  Report Type: Report from Study
  Country: JP (occurrence: JP)
  Receive Date: 20200925
  Receipt Date: 20210212
  Transmission Date: 20210419
  Serious: Yes (Hospitalization)
  Sender: FDA-Public Use
  Company Number: JP-JNJFOC-A-CH2012-67937

PATIENT
  Age: 13 Year
  Sex: Male

DRUGS (33)
  1. ZAVESCA [Suspect]
     Active Substance: MIGLUSTAT
     Dosage: 100 MG, BID
     Route: 048
     Dates: start: 20121023, end: 20140709
  2. VIMPAT [Concomitant]
     Active Substance: LACOSAMIDE
     Indication: EPILEPSY
  3. E KEPPRA [Concomitant]
     Active Substance: LEVETIRACETAM
     Indication: EPILEPSY
  4. ZAVESCA [Suspect]
     Active Substance: MIGLUSTAT
     Indication: NIEMANN-PICK DISEASE
     Dosage: 100 MG, TID
     Route: 048
     Dates: start: 20120621, end: 20121022
  5. ZAVESCA [Suspect]
     Active Substance: MIGLUSTAT
     Dosage: 100 MG, QD
     Route: 048
     Dates: start: 20160510, end: 20160516
  6. ZAVESCA [Suspect]
     Active Substance: MIGLUSTAT
     Dosage: 100 MG, BID
     Route: 048
     Dates: start: 20160517, end: 20160523
  7. ONON [Concomitant]
     Active Substance: PRANLUKAST
     Indication: RESPIRATORY TRACT INFLAMMATION
     Dosage: UNK
  8. ALFACALCIDOL [Concomitant]
     Active Substance: ALFACALCIDOL
     Indication: HYPOCALCAEMIA
  9. SODIUM VALPROATE [Concomitant]
     Active Substance: VALPROATE SODIUM
  10. ZAVESCA [Suspect]
     Active Substance: MIGLUSTAT
     Dosage: 100 MG, BID
     Route: 048
     Dates: start: 20170703, end: 20170709
  11. ZAVESCA [Suspect]
     Active Substance: MIGLUSTAT
     Dosage: 100 MG, BID
     Route: 048
     Dates: start: 20171226, end: 20180911
  12. PIPERACILLIN AND TAZOBACTAM [Suspect]
     Active Substance: PIPERACILLIN SODIUM\TAZOBACTAM SODIUM
     Indication: BRONCHITIS
     Dosage: UNK
     Route: 042
     Dates: start: 20181105, end: 20181119
  13. DIAPP [Concomitant]
     Active Substance: DIAZEPAM
     Indication: EPILEPSY
  14. LEVOCARNITINE HYDROCHLORIDE [Concomitant]
     Active Substance: LEVOCARNITINE HYDROCHLORIDE
     Indication: HYPOCALCAEMIA
  15. ZAVESCA [Suspect]
     Active Substance: MIGLUSTAT
     Dosage: 100 MG, TID
     Route: 048
     Dates: start: 20140710, end: 20150317
  16. ZAVESCA [Suspect]
     Active Substance: MIGLUSTAT
     Dosage: 100 MG, TID
     Route: 048
     Dates: start: 20160524, end: 20160605
  17. ZAVESCA [Suspect]
     Active Substance: MIGLUSTAT
     Dosage: 200 MG, BID
     Route: 048
     Dates: start: 20170710, end: 20171225
  18. ALEVIATIN [Concomitant]
     Active Substance: PHENYTOIN SODIUM
     Indication: EPILEPSY
  19. WAKOBITAL [Concomitant]
     Indication: EPILEPSY
  20. ZAVESCA [Suspect]
     Active Substance: MIGLUSTAT
     Dosage: 200 MG, BID
     Route: 048
     Dates: start: 20160606, end: 20170522
  21. ZAVESCA [Suspect]
     Active Substance: MIGLUSTAT
     Dosage: 100 MG, BID
     Route: 048
     Dates: start: 20190109, end: 20190129
  22. ZAVESCA [Suspect]
     Active Substance: MIGLUSTAT
     Dosage: 100 MG, TID
     Route: 048
     Dates: start: 20190925
  23. DEPAKENE [Concomitant]
     Active Substance: VALPROIC ACID
     Indication: EPILEPSY
  24. ZAVESCA [Suspect]
     Active Substance: MIGLUSTAT
     Dosage: 200 MG, BID
     Route: 048
     Dates: start: 20150318, end: 20160304
  25. ANAFRANIL [Concomitant]
     Active Substance: CLOMIPRAMINE HYDROCHLORIDE
     Indication: EPILEPSY
  26. DIAZEPAM. [Concomitant]
     Active Substance: DIAZEPAM
  27. MYSTAN [Concomitant]
     Active Substance: CLOBAZAM
     Indication: EPILEPSY
  28. ZAVESCA [Suspect]
     Active Substance: MIGLUSTAT
     Dosage: 100 MG, TID
     Route: 048
     Dates: start: 20180912, end: 20181126
  29. FYCOMPA [Concomitant]
     Active Substance: PERAMPANEL
     Indication: EPILEPSY
  30. TOPINA [Concomitant]
     Active Substance: TOPIRAMATE
     Indication: EPILEPSY
  31. ZAVESCA [Suspect]
     Active Substance: MIGLUSTAT
     Dosage: 100 MG, QD
     Route: 048
     Dates: start: 20190130, end: 20190716
  32. ZAVESCA [Suspect]
     Active Substance: MIGLUSTAT
     Dosage: 100 MG, QD
     Route: 048
     Dates: start: 20190926
  33. EXCEGRAN [Concomitant]
     Active Substance: ZONISAMIDE
     Indication: EPILEPSY

REACTIONS (5)
  - Diarrhoea [Recovering/Resolving]
  - Gastroenteritis [Recovering/Resolving]
  - Bronchitis [Recovered/Resolved]
  - Malnutrition [Recovering/Resolving]
  - Constipation [Recovering/Resolving]

NARRATIVE: CASE EVENT DATE: 20120622
